FAERS Safety Report 23182055 (Version 1)
Quarter: 2023Q4

REPORT INFORMATION
  Report Type: Report from Study
  Country: US (occurrence: US)
  Receive Date: 20231114
  Receipt Date: 20231114
  Transmission Date: 20240110
  Serious: Yes (Other)
  Sender: FDA-Public Use
  Company Number: US-ALXN-A202214018AA

PATIENT
  Age: 52 Year
  Sex: Female

DRUGS (2)
  1. STRENSIQ [Suspect]
     Active Substance: ASFOTASE ALFA
     Indication: Hypophosphatasia
     Dosage: UNK
     Route: 065
  2. STRENSIQ [Suspect]
     Active Substance: ASFOTASE ALFA
     Dosage: 50 MG/KG, SIX DAYS A WEEK
     Route: 065

REACTIONS (10)
  - Dupuytren^s contracture [Unknown]
  - Weight increased [Unknown]
  - Depressed mood [Not Recovered/Not Resolved]
  - Stress fracture [Not Recovered/Not Resolved]
  - Fatigue [Recovered/Resolved]
  - Nodule [Unknown]
  - Vitamin D decreased [Unknown]
  - Decreased activity [Unknown]
  - Skin disorder [Unknown]
  - Vitamin B12 increased [Not Recovered/Not Resolved]

NARRATIVE: CASE EVENT DATE: 20230101
